FAERS Safety Report 10052891 (Version 2)
Quarter: 2014Q2

REPORT INFORMATION
  Report Type: Report from Study
  Country: PL (occurrence: PL)
  Receive Date: 20140402
  Receipt Date: 20140402
  Transmission Date: 20141212
  Serious: Yes (Other)
  Sender: FDA-Public Use
  Company Number: PL-PFIZER INC-2012078183

PATIENT
  Age: 57 Year
  Sex: Female
  Weight: 109 kg

DRUGS (3)
  1. TOFACITINIB CITRATE [Suspect]
     Indication: PSORIASIS
     Dosage: 10 MG, 2X/DAY
     Route: 048
     Dates: end: 20120326
  2. PLACEBO [Suspect]
     Indication: PSORIASIS
     Dosage: 0MG 2X/DAY
     Route: 048
     Dates: start: 20110705
  3. AMLOPIN [Concomitant]
     Indication: HYPERTENSION
     Dosage: UNK
     Route: 048
     Dates: start: 20110826

REACTIONS (1)
  - Lung infection [Recovered/Resolved]
